FAERS Safety Report 24185849 (Version 2)
Quarter: 2024Q4

REPORT INFORMATION
  Report Type: Spontaneous
  Country: US (occurrence: US)
  Receive Date: 20240807
  Receipt Date: 20241031
  Transmission Date: 20250115
  Serious: No
  Sender: BIOGEN
  Company Number: US-BIOGEN-2024BI01276713

PATIENT
  Age: 43 Year
  Sex: Male

DRUGS (2)
  1. QALSODY [Suspect]
     Active Substance: TOFERSEN
     Indication: Amyotrophic lateral sclerosis
     Route: 050
     Dates: start: 20240210
  2. QALSODY [Suspect]
     Active Substance: TOFERSEN
     Route: 050
     Dates: end: 20240926

REACTIONS (2)
  - CSF pressure decreased [Unknown]
  - Procedural pain [Unknown]

NARRATIVE: CASE EVENT DATE: 20240705
